FAERS Safety Report 7586216-4 (Version None)
Quarter: 2011Q3

REPORT INFORMATION
  Report Type: 
  Country: None (occurrence: None)
  Receive Date: 20110701
  Receipt Date: 20110628
  Transmission Date: 20111222
  Serious: Yes (Hospitalization, Other)
  Sender: FDA-Public Use
  Company Number: CHPA2011US08579

PATIENT
  Age: 82 Year
  Sex: Female
  Weight: 68.027 kg

DRUGS (4)
  1. VOLTAREN [Suspect]
     Indication: MUSCULOSKELETAL PAIN
     Dosage: 2 G, TID
     Route: 061
     Dates: start: 20110501
  2. CORTISONE ACETATE [Concomitant]
  3. VOLTAREN [Suspect]
     Indication: MUSCLE RUPTURE
     Dosage: 2 G, TID
     Route: 061
     Dates: start: 20090101
  4. ASPIRIN [Concomitant]
     Indication: PROPHYLAXIS
     Dosage: 1 DF, QD
     Route: 048
     Dates: start: 20010101

REACTIONS (7)
  - INTESTINAL OBSTRUCTION [None]
  - DIVERTICULITIS [None]
  - THERAPEUTIC RESPONSE UNEXPECTED [None]
  - DRUG ADMINISTERED AT INAPPROPRIATE SITE [None]
  - DIARRHOEA [None]
  - INFECTION [None]
  - OFF LABEL USE [None]
